FAERS Safety Report 13608956 (Version 5)
Quarter: 2017Q4

REPORT INFORMATION
  Report Type: Report from Study
  Country: US (occurrence: US)
  Receive Date: 20170602
  Receipt Date: 20171213
  Transmission Date: 20180320
  Serious: Yes (Hospitalization, Other)
  Sender: FDA-Public Use
  Company Number: PHHO2016US003233

PATIENT
  Age: 67 Year
  Sex: Male
  Weight: 83.46 kg

DRUGS (13)
  1. LISINOPRIL. [Concomitant]
     Active Substance: LISINOPRIL
     Indication: HYPERTENSION
     Dosage: 10 MG, QD
     Route: 048
     Dates: start: 20170121, end: 20170208
  2. TACROLIMUS. [Suspect]
     Active Substance: TACROLIMUS
     Dosage: 0.5 MG, QD
     Route: 048
     Dates: start: 20161121, end: 20170307
  3. HSC835 [Suspect]
     Active Substance: INVESTIGATIONAL PRODUCT
     Indication: STEM CELL TRANSPLANT
     Dosage: 1.32 X 10^8
     Route: 042
     Dates: start: 20141204, end: 20141204
  4. HYDROMORPHONE [Suspect]
     Active Substance: HYDROMORPHONE
     Indication: BACK PAIN
     Dosage: 6-8 MG PRN
     Route: 048
     Dates: start: 20170420, end: 20170425
  5. FUROSEMIDE. [Concomitant]
     Active Substance: FUROSEMIDE
     Indication: CARDIAC FAILURE
     Dosage: 40 MG, QD
     Route: 048
     Dates: start: 20170517, end: 20170619
  6. ACETYLSALICYLIC ACID [Suspect]
     Active Substance: ASPIRIN
     Indication: CARDIOVASCULAR EVENT PROPHYLAXIS
     Dosage: 325 MG, QD
     Route: 048
     Dates: start: 20170102
  7. ACETYLSALICYLIC ACID [Suspect]
     Active Substance: ASPIRIN
     Indication: CEREBROVASCULAR ACCIDENT
  8. BUDESONIDE. [Concomitant]
     Active Substance: BUDESONIDE
     Dosage: 6 MG, BID
     Route: 048
     Dates: start: 20160701, end: 20160809
  9. TACROLIMUS. [Suspect]
     Active Substance: TACROLIMUS
     Indication: PROPHYLAXIS AGAINST GRAFT VERSUS HOST DISEASE
     Dosage: VARIED, INT. TAPERS/INCREASE
     Route: 048
     Dates: start: 20150505, end: 20160701
  10. PREDNISONE. [Suspect]
     Active Substance: PREDNISONE
     Indication: ACUTE GRAFT VERSUS HOST DISEASE
     Dosage: UNK
     Route: 065
     Dates: start: 20161124
  11. BUDESONIDE. [Concomitant]
     Active Substance: BUDESONIDE
     Indication: CHRONIC GRAFT VERSUS HOST DISEASE
     Dosage: 3 MG, TID
     Route: 048
     Dates: start: 20150106, end: 20160114
  12. METOPROLOL. [Concomitant]
     Active Substance: METOPROLOL
     Indication: HYPERTENSION
     Dosage: 25 MG, BID
     Route: 048
     Dates: start: 20150603
  13. TACROLIMUS. [Suspect]
     Active Substance: TACROLIMUS
     Dosage: 0.15 MG, QD
     Route: 048
     Dates: start: 20160702, end: 20161120

REACTIONS (16)
  - Clostridium difficile colitis [Recovered/Resolved]
  - Chronic graft versus host disease [Recovered/Resolved with Sequelae]
  - Clostridium difficile infection [Recovered/Resolved]
  - Acute kidney injury [Recovered/Resolved with Sequelae]
  - Non-cardiac chest pain [Recovered/Resolved]
  - Respiratory syncytial virus infection [Recovered/Resolved]
  - Cellulitis [Recovered/Resolved]
  - Atrial fibrillation [Recovered/Resolved]
  - Cardiac failure [Recovered/Resolved with Sequelae]
  - Lethargy [Recovered/Resolved]
  - Pneumonia [Recovered/Resolved]
  - Hyperkalaemia [Recovered/Resolved]
  - Clostridium difficile colitis [Recovered/Resolved]
  - Clostridium difficile colitis [Recovered/Resolved]
  - Dehydration [Recovered/Resolved]
  - Decreased appetite [Recovered/Resolved]

NARRATIVE: CASE EVENT DATE: 20151210
